FAERS Safety Report 4679618-7 (Version None)
Quarter: 2005Q2

REPORT INFORMATION
  Report Type: 
  Country: None (occurrence: None)
  Receive Date: 20050531
  Receipt Date: 20050517
  Transmission Date: 20051028
  Serious: Yes (Hospitalization)
  Sender: FDA-Public Use
  Company Number: B0381315A

PATIENT
  Age: 86 Year
  Sex: Female
  Weight: 54.8852 kg

DRUGS (7)
  1. PAXIL [Suspect]
     Indication: ILL-DEFINED DISORDER
     Dosage: 20 MG / PER DAY / ORAL
     Route: 048
     Dates: end: 20050401
  2. METRONIDAZOLE TABLET (MITRONIDAZOLE) [Suspect]
     Indication: ILL-DEFINED DISORDER
     Dosage: 500 MG/ THREE TIMES PER DAY ; ORAL
     Route: 048
     Dates: end: 20050401
  3. FLUINDIONE [Concomitant]
  4. OFLOXACIN [Concomitant]
  5. DEXTROPROPOXYPHENE [Concomitant]
  6. CEFTRIAXONE SODIUM [Concomitant]
  7. WARFARIN SODIUM [Concomitant]

REACTIONS (11)
  - ABDOMINAL PAIN [None]
  - CHOLELITHIASIS [None]
  - CHOLESTASIS [None]
  - DIVERTICULITIS [None]
  - GENERAL PHYSICAL CONDITION ABNORMAL [None]
  - HEPATITIS CHOLESTATIC [None]
  - HEPATOMEGALY [None]
  - PHLEBITIS [None]
  - PULMONARY EMBOLISM [None]
  - PYREXIA [None]
  - SIGMOIDITIS [None]
